FAERS Safety Report 14563105 (Version 1)
Quarter: 2018Q1

REPORT INFORMATION
  Report Type: Spontaneous
  Country: US (occurrence: US)
  Receive Date: 20180222
  Receipt Date: 20180222
  Transmission Date: 20180509
  Serious: No
  Sender: FDA-Public Use
  Company Number: None

PATIENT
  Age: 17 Year
  Sex: Female
  Weight: 63.09 kg

DRUGS (3)
  1. SCOPOLAMINE TRANSDERMAL SYSTEM 1MG/3DAYS [Suspect]
     Active Substance: SCOPOLAMINE
     Indication: ANTIEMETIC SUPPORTIVE CARE
     Dosage: QUANTITY:1 PATCH(ES);OTHER FREQUENCY:WEAR PATCH 3 DAYS;?
     Route: 062
     Dates: start: 20180220, end: 20180222
  2. ACAI BERRY CLEANSE [Concomitant]
     Active Substance: DIETARY SUPPLEMENT
  3. ZOLOFT [Concomitant]
     Active Substance: SERTRALINE HYDROCHLORIDE

REACTIONS (3)
  - Vision blurred [None]
  - Neck pain [None]
  - Oropharyngeal pain [None]

NARRATIVE: CASE EVENT DATE: 20180221
